FAERS Safety Report 10874024 (Version 1)
Quarter: 2015Q1

REPORT INFORMATION
  Report Type: Spontaneous
  Country: US (occurrence: None)
  Receive Date: 20150224
  Receipt Date: 20150224
  Transmission Date: 20150721
  Serious: Yes (Hospitalization)
  Sender: FDA-Public Use
  Company Number: 2015SA021363

PATIENT
  Age: 20 Year
  Sex: Male

DRUGS (3)
  1. VICKS DAYQUIL [Concomitant]
     Active Substance: DEXTROMETHORPHAN HYDROBROMIDE\GUAIFENESIN
  2. VICKS NYQUIL [Concomitant]
     Active Substance: ACETAMINOPHEN\DEXTROMETHORPHAN HYDROBROMIDE\DOXYLAMINE SUCCINATE
  3. DIPHENHYDRAMINE / UNKNOWN / UNKNOWN [Suspect]
     Active Substance: DIPHENHYDRAMINE

REACTIONS (8)
  - Delirium [None]
  - Urinary incontinence [None]
  - Sinus tachycardia [None]
  - Electrocardiogram QT prolonged [None]
  - Blood glucose decreased [None]
  - Anticholinergic syndrome [None]
  - Toxicity to various agents [None]
  - Hypertension [None]
